FAERS Safety Report 5251100-8 (Version None)
Quarter: 2007Q1

REPORT INFORMATION
  Report Type: 
  Country: None (occurrence: None)
  Receive Date: 20070228
  Receipt Date: 20060905
  Transmission Date: 20070707
  Serious: No
  Sender: FDA-Public Use
  Company Number: US-GLAXOSMITHKLINE-A0617997A

PATIENT
  Age: 50 Year
  Sex: Female
  Weight: 113.6 kg

DRUGS (2)
  1. LAMICTAL [Suspect]
     Indication: BIPOLAR DISORDER
     Dosage: 25MG PER DAY
     Route: 048
     Dates: start: 20060815, end: 20060825
  2. ABILIFY [Concomitant]
     Indication: BIPOLAR DISORDER
     Dosage: 15MG PER DAY
     Route: 065
     Dates: start: 20060815, end: 20060825

REACTIONS (4)
  - CHEILITIS [None]
  - GINGIVAL ULCERATION [None]
  - TONGUE BLISTERING [None]
  - TONGUE ULCERATION [None]
